FAERS Safety Report 23424244 (Version 1)
Quarter: 2024Q1

REPORT INFORMATION
  Report Type: Spontaneous
  Country: GB (occurrence: GB)
  Receive Date: 20240120
  Receipt Date: 20240120
  Transmission Date: 20240410
  Serious: Yes (Other)
  Sender: FDA-Public Use
  Company Number: GB-MHRA-TPP58003949C7463405YC1662735957437

PATIENT
  Age: 44 Year
  Sex: Male

DRUGS (2)
  1. CEPHALEXIN [Suspect]
     Active Substance: CEPHALEXIN
     Indication: Ill-defined disorder
     Dosage: 250 MILLIGRAM
     Route: 065
     Dates: start: 20220908
  2. ALBUTEROL [Concomitant]
     Active Substance: ALBUTEROL
     Indication: Ill-defined disorder
     Dosage: 2 DOSAGE FORM, AS NECESSARY(UNK, AS NECESSARY(INHALE 2 DOSES AS NEEDED  )
     Route: 055
     Dates: start: 20220908

REACTIONS (1)
  - Swelling of eyelid [Recovered/Resolved]

NARRATIVE: CASE EVENT DATE: 20220909
